FAERS Safety Report 10376211 (Version 1)
Quarter: 2014Q3

REPORT INFORMATION
  Report Type: Spontaneous
  Country: US (occurrence: US)
  Receive Date: 20140811
  Receipt Date: 20140811
  Transmission Date: 20150326
  Serious: No
  Sender: FDA-Public Use
  Company Number: US-ASTRAZENECA-2013SE76437

PATIENT
  Sex: Female

DRUGS (3)
  1. FEMORA [Concomitant]
     Indication: BREAST CANCER
  2. TAMOXIFEN [Concomitant]
     Active Substance: TAMOXIFEN
     Indication: BREAST CANCER
     Dosage: TAMIXIFEN UNKNOWN MANUFACTURER
     Dates: start: 2000, end: 2005
  3. ANASTROZOLE. [Suspect]
     Active Substance: ANASTROZOLE
     Dosage: GENERIC 1 PILL DAILY
     Route: 048
     Dates: start: 201310

REACTIONS (1)
  - Hepatic cyst [Unknown]
